FAERS Safety Report 13216212 (Version 1)
Quarter: 2017Q1

REPORT INFORMATION
  Report Type: Report from Study
  Country: US (occurrence: US)
  Receive Date: 20170209
  Receipt Date: 20170209
  Transmission Date: 20170428
  Serious: No
  Sender: FDA-Public Use
  Company Number: US-AMGEN-USASL2017020308

PATIENT
  Sex: Female

DRUGS (1)
  1. ENBREL [Suspect]
     Active Substance: ETANERCEPT
     Indication: PRODUCT USED FOR UNKNOWN INDICATION
     Dosage: UNK
     Route: 065

REACTIONS (14)
  - Chills [Unknown]
  - Weight decreased [Unknown]
  - Decreased appetite [Unknown]
  - Hypoaesthesia [Unknown]
  - Limb discomfort [Unknown]
  - Cardiac murmur [Unknown]
  - Fatigue [Unknown]
  - Pyrexia [Unknown]
  - Stomatitis [Unknown]
  - Muscular weakness [Unknown]
  - Diarrhoea [Unknown]
  - Peripheral swelling [Unknown]
  - Asthenia [Unknown]
  - Paraesthesia [Unknown]
